FAERS Safety Report 9176556 (Version 2)
Quarter: 2013Q3

REPORT INFORMATION
  Report Type: Report from Study
  Country: CA (occurrence: CA)
  Receive Date: 20130321
  Receipt Date: 20130828
  Transmission Date: 20140515
  Serious: Yes (Congenital Anomaly)
  Sender: FDA-Public Use
  Company Number: CA-JNJFOC-20130306928

PATIENT
  Age: 0 Year
  Sex: Male

DRUGS (2)
  1. REMICADE [Suspect]
     Indication: EXPOSURE VIA FATHER
     Route: 064
  2. SYMBICORT [Suspect]
     Indication: EXPOSURE VIA FATHER
     Route: 064

REACTIONS (1)
  - Trisomy 21 [Unknown]
